FAERS Safety Report 10725126 (Version 1)
Quarter: 2015Q1

REPORT INFORMATION
  Report Type: Spontaneous
  Country: IT (occurrence: FR)
  Receive Date: 20150120
  Receipt Date: 20150120
  Transmission Date: 20150721
  Serious: Yes (Hospitalization)
  Sender: FDA-Public Use
  Company Number: FR-FRI-1000073527

PATIENT
  Age: 86 Year
  Sex: Female

DRUGS (9)
  1. ENDOTELON [Suspect]
     Active Substance: GRAPE SEED EXTRACT
     Route: 048
  2. KARDEGIC [Concomitant]
     Active Substance: ASPIRIN LYSINE
     Route: 048
  3. REMINYL [Suspect]
     Active Substance: GALANTAMINE
     Indication: DEMENTIA ALZHEIMER^S TYPE
     Route: 048
  4. FLECAINE [Suspect]
     Active Substance: FLECAINIDE
     Route: 048
  5. NEBIVOLOL [Suspect]
     Active Substance: NEBIVOLOL
     Indication: HYPERTENSION
     Route: 048
  6. STILNOX [Suspect]
     Active Substance: ZOLPIDEM TARTRATE
     Route: 048
  7. MANIDIPINE [Suspect]
     Active Substance: MANIDIPINE
     Indication: HYPERTENSION
     Route: 048
  8. ATACAND [Suspect]
     Active Substance: CANDESARTAN CILEXETIL
     Indication: HYPERTENSION
     Route: 048
  9. OGAST [Suspect]
     Active Substance: LANSOPRAZOLE
     Route: 048

REACTIONS (2)
  - Hyponatraemia [Unknown]
  - Hypoosmolar state [Unknown]

NARRATIVE: CASE EVENT DATE: 20141214
